FAERS Safety Report 11237262 (Version 2)
Quarter: 2015Q3

REPORT INFORMATION
  Report Type: Spontaneous
  Country: US (occurrence: US)
  Receive Date: 20150703
  Receipt Date: 20150728
  Transmission Date: 20151125
  Serious: Yes (Other)
  Sender: FDA-Public Use
  Company Number: US-JNJFOC-20150618365

PATIENT
  Age: 72 Year
  Sex: Male
  Weight: 81.65 kg

DRUGS (5)
  1. LEVAQUIN [Suspect]
     Active Substance: LEVOFLOXACIN
     Indication: PROSTATITIS
     Dosage: WAS PRESCRIBED FOR 10 DAYS
     Route: 048
     Dates: start: 20150611, end: 201506
  2. PHENOBARBITAL. [Concomitant]
     Active Substance: PHENOBARBITAL
     Dosage: AT BEDTIME FOR SLEEP X 40 WKS
     Route: 065
  3. LEVAQUIN [Suspect]
     Active Substance: LEVOFLOXACIN
     Indication: PROSTATITIS
     Dosage: 2 FIRST
     Route: 048
     Dates: start: 20150601, end: 20150610
  4. DIAZEPAM. [Concomitant]
     Active Substance: DIAZEPAM
     Dosage: AT BEDTIME FOR SLEEP X 40 WKS
     Route: 065
  5. LEVAQUIN [Suspect]
     Active Substance: LEVOFLOXACIN
     Indication: PROSTATITIS
     Dosage: 2 FIRST
     Route: 048
     Dates: start: 20150531, end: 20150531

REACTIONS (2)
  - Abasia [Recovering/Resolving]
  - Arthralgia [Recovering/Resolving]

NARRATIVE: CASE EVENT DATE: 201506
